FAERS Safety Report 10244717 (Version 1)
Quarter: 2014Q1

REPORT INFORMATION
  Report Type: Spontaneous
  Country: US (occurrence: None)
  Receive Date: 20140306
  Receipt Date: 20140306
  Transmission Date: 20141002
  Serious: Yes (Hospitalization, Other)
  Sender: FDA-Public Use
  Company Number: 163-21880-13022505

PATIENT
  Age: 78 Year
  Sex: Female

DRUGS (20)
  1. REVLIMID (LENALIDOMIDE) (10 MILLIGRAM, CAPSULES) [Suspect]
     Indication: MYELODYSPLASTIC SYNDROME
     Route: 048
     Dates: start: 20120822
  2. ALBUTEROL (SALBUTAMOL) (AEROSOL) FOR INHALATION [Concomitant]
  3. CALCIUM CITRATE (CALCIUM CITRATE) [Concomitant]
  4. COUMADIN (WARFARIN SODIUM) (TABLETS) [Concomitant]
  5. FISH OIL (FISH OIL) (TABLETS) [Concomitant]
  6. GARLIC OIL (ALLIUM SATIVUM OIL) (TABLETS) [Concomitant]
  7. GLUCOSAMINE + CHONDROITIN (GLUCOSAMINE W/CHONDROITIN SULFATE) [Concomitant]
  8. METOPROLOL SUCCINATE (METOPROLOL SUCCINATE) [Concomitant]
  9. PRENATAL VITAMINS (PRENATAL VITAMINS) [Concomitant]
  10. SUPER B COMPLEX (SUPER B 50 COMPLEX) [Concomitant]
  11. SYMBICORT (SYMBICORT TURBUHALER ^DRACO^) [Concomitant]
  12. SYSTANE (RHINARIS) (GEL) [Concomitant]
  13. ZANTAC (RANITIDINE HYDROCHLORIDE) [Concomitant]
  14. FLAXSEED OIL (LINSEED OIL) [Concomitant]
  15. ACETAMINOPHEN (PARACETAMOL) [Concomitant]
  16. ASPIRIN (ACETYLSALICYLIC ACID) (ENTERIC-COATED TABLET) [Concomitant]
  17. LISINOPRIL (LISINOPRIL) [Concomitant]
  18. MELATONIN (MELATONIN)) [Concomitant]
  19. ST JOHNS WART (HYPERICUM PERFORATUM) [Concomitant]
  20. IMODIUM A-D (LOPERAMIDE HYDROCHLORIDE) [Concomitant]

REACTIONS (9)
  - Upper respiratory tract infection [None]
  - Urinary tract infection [None]
  - Sinusitis [None]
  - Thrombosis [None]
  - Kidney infection [None]
  - Lung infection [None]
  - Neutropenia [None]
  - Sinusitis [None]
  - Diarrhoea [None]
